FAERS Safety Report 23231433 (Version 2)
Quarter: 2024Q2

REPORT INFORMATION
  Report Type: Spontaneous
  Country: US (occurrence: US)
  Receive Date: 20231127
  Receipt Date: 20240528
  Transmission Date: 20240716
  Serious: No
  Sender: FDA-Public Use
  Company Number: US-AVADEL CNS PHARMACEUTICALS, LLC-2023AVA00172

PATIENT
  Age: 36 Year
  Sex: Female

DRUGS (12)
  1. LUMRYZ [Suspect]
     Active Substance: SODIUM OXYBATE
     Indication: Narcolepsy
     Dosage: 9 G, ONCE NIGHTLY
     Dates: start: 20230907
  2. ADDERALL XR [Concomitant]
     Active Substance: AMPHETAMINE ASPARTATE\AMPHETAMINE SULFATE\DEXTROAMPHETAMINE SACCHARATE\DEXTROAMPHETAMINE SULFATE
     Dosage: 30 MG, DAILY
  3. VRAYLAR [Concomitant]
     Active Substance: CARIPRAZINE
     Dosage: 1.5 MG DAILY
  4. WELLBUTRIN XL [Concomitant]
     Active Substance: BUPROPION HYDROCHLORIDE
     Dosage: 300 MG DAILY
  5. CORGARD [Concomitant]
     Active Substance: NADOLOL
     Dosage: 20 MG TWICE DAILY
  6. TRILEPTAL [Concomitant]
     Active Substance: OXCARBAZEPINE
     Dosage: 300 MG AT BED TIME
  7. MAXALT [Concomitant]
     Active Substance: RIZATRIPTAN BENZOATE
     Dosage: UNK, AS NEEDED
  8. NURTEC ODT [Concomitant]
     Active Substance: RIMEGEPANT SULFATE
     Dosage: 75 MG, EVERY OTHER DAY
  9. VITAMINS NOS [Concomitant]
     Active Substance: VITAMINS
  10. FISH OIL [Concomitant]
     Active Substance: FISH OIL
  11. CRANBERRY PILLS [Concomitant]
  12. LEVOMEFOLIC ACID [Concomitant]
     Active Substance: LEVOMEFOLIC ACID
     Dosage: UNK

REACTIONS (5)
  - Insomnia [Not Recovered/Not Resolved]
  - Middle insomnia [Not Recovered/Not Resolved]
  - Anxiety [Not Recovered/Not Resolved]
  - Enuresis [Unknown]
  - Drug effect less than expected [Recovered/Resolved]

NARRATIVE: CASE EVENT DATE: 20230901
